FAERS Safety Report 10583241 (Version 2)
Quarter: 2014Q4

REPORT INFORMATION
  Report Type: Spontaneous
  Country: JP (occurrence: JP)
  Receive Date: 20141114
  Receipt Date: 20141114
  Transmission Date: 20150529
  Serious: Yes (Death)
  Sender: FDA-Public Use
  Company Number: JP-CIPLA LTD.-2014JP00155

PATIENT
  Age: 52 Year
  Sex: Female

DRUGS (2)
  1. RISPERIDONE. [Suspect]
     Active Substance: RISPERIDONE
     Indication: MENTAL DISORDER
     Dosage: 82 TABLETS
  2. ETHANOL [Suspect]
     Active Substance: ALCOHOL
     Indication: BLOOD ETHANOL
     Dosage: UNK

REACTIONS (4)
  - Toxicity to various agents [Fatal]
  - Completed suicide [None]
  - Intentional overdose [Fatal]
  - Sudden death [None]

NARRATIVE: CASE EVENT DATE: 20120110
